FAERS Safety Report 10195960 (Version 2)
Quarter: 2014Q3

REPORT INFORMATION
  Report Type: Report from Study
  Country: DE (occurrence: DE)
  Receive Date: 20140527
  Receipt Date: 20140703
  Transmission Date: 20150326
  Serious: Yes (Disabling, Other)
  Sender: FDA-Public Use
  Company Number: PHHY2014DE061497

PATIENT
  Age: 72 Year
  Sex: Male

DRUGS (1)
  1. AFINITOR [Suspect]
     Active Substance: EVEROLIMUS
     Dosage: 10 MG, UNK
     Dates: start: 20120209

REACTIONS (1)
  - Sudden hearing loss [Recovering/Resolving]

NARRATIVE: CASE EVENT DATE: 20130219
